FAERS Safety Report 7718421-8 (Version None)
Quarter: 2011Q3

REPORT INFORMATION
  Report Type: 
  Country: None (occurrence: None)
  Receive Date: 20110830
  Receipt Date: 20110825
  Transmission Date: 20111222
  Serious: No
  Sender: FDA-Public Use
  Company Number: US-PFIZER INC-2011198180

PATIENT
  Sex: Female
  Weight: 41.723 kg

DRUGS (3)
  1. CREON [Concomitant]
     Dosage: UNK
  2. PROTONIX [Suspect]
     Indication: PANCREATECTOMY
     Dosage: 40 MG, 1X/DAY
     Route: 048
     Dates: start: 20050101
  3. PANTOPRAZOLE [Suspect]
     Indication: PANCREATECTOMY
     Dosage: UNK
     Dates: start: 20110630, end: 20110822

REACTIONS (2)
  - VITAMIN D DECREASED [None]
  - WEIGHT DECREASED [None]
